FAERS Safety Report 4288739-2 (Version None)
Quarter: 2004Q1

REPORT INFORMATION
  Report Type: 
  Country: None (occurrence: None)
  Receive Date: 20040205
  Receipt Date: 20040127
  Transmission Date: 20041129
  Serious: Yes (Hospitalization)
  Sender: FDA-Public Use
  Company Number: 2004GB00243

PATIENT
  Sex: Female

DRUGS (1)
  1. SEROQUEL [Suspect]

REACTIONS (1)
  - BLOOD SODIUM DECREASED [None]
